FAERS Safety Report 7678734-5 (Version None)
Quarter: 2011Q3

REPORT INFORMATION
  Report Type: 
  Country: None (occurrence: None)
  Receive Date: 20110811
  Receipt Date: 20110801
  Transmission Date: 20111222
  Serious: Yes (Death)
  Sender: FDA-Public Use
  Company Number: GB-GENENTECH-317833

PATIENT
  Sex: Female
  Weight: 64 kg

DRUGS (1)
  1. LUCENTIS [Suspect]
     Indication: PRODUCT USED FOR UNKNOWN INDICATION

REACTIONS (4)
  - METASTATIC NEOPLASM [None]
  - DIVERTICULAR PERFORATION [None]
  - DIARRHOEA [None]
  - INFECTIOUS PERITONITIS [None]
